FAERS Safety Report 8322013-X (Version None)
Quarter: 2012Q2

REPORT INFORMATION
  Report Type: 
  Country: None (occurrence: None)
  Receive Date: 20120430
  Receipt Date: 20120423
  Transmission Date: 20120825
  Serious: Yes (Life-Threatening, Hospitalization)
  Sender: FDA-Public Use
  Company Number: JP-CELGENEUS-087-50794-12042125

PATIENT
  Age: 72 Year
  Sex: Male
  Weight: 63 kg

DRUGS (16)
  1. GRANISETRON HCL [Concomitant]
     Route: 065
     Dates: start: 20120312, end: 20120318
  2. VIDAZA [Suspect]
     Dosage: 75 MILLIGRAM/SQ. METER
     Route: 041
     Dates: start: 20120216, end: 20120222
  3. PRAVASTATIN SODIUM [Concomitant]
     Route: 065
     Dates: start: 20110111, end: 20120402
  4. MAGNESIUM SULFATE [Concomitant]
     Route: 065
     Dates: start: 20120218, end: 20120408
  5. GRANISETRON HCL [Concomitant]
     Route: 065
     Dates: start: 20120118, end: 20120124
  6. NAPROXEN [Concomitant]
     Route: 065
     Dates: start: 20120313, end: 20120402
  7. VIDAZA [Suspect]
     Dosage: 75 MILLIGRAM/SQ. METER
     Route: 041
     Dates: start: 20120118, end: 20120124
  8. ALLOPURINOL [Concomitant]
     Route: 065
     Dates: start: 20120111, end: 20120402
  9. ASPIRIN [Concomitant]
     Route: 065
     Dates: end: 20120402
  10. PLETAAL OD [Concomitant]
     Route: 065
     Dates: end: 20120402
  11. EXJADE [Concomitant]
     Route: 065
     Dates: start: 20111031, end: 20120402
  12. VIDAZA [Suspect]
     Dosage: 75 MILLIGRAM/SQ. METER
     Route: 041
     Dates: start: 20120312, end: 20120318
  13. FIRSTCIN [Concomitant]
     Route: 065
     Dates: start: 20120314, end: 20120319
  14. FLUCONAZOLE [Concomitant]
     Route: 065
     Dates: start: 20120111, end: 20120305
  15. GRANISETRON HCL [Concomitant]
     Route: 065
     Dates: start: 20120216, end: 20120222
  16. FIRSTCIN [Concomitant]
     Route: 065
     Dates: start: 20120129, end: 20120201

REACTIONS (5)
  - BLAST CELL COUNT INCREASED [None]
  - C-REACTIVE PROTEIN INCREASED [None]
  - PLATELET COUNT DECREASED [None]
  - FEBRILE NEUTROPENIA [None]
  - NEUTROPHIL COUNT DECREASED [None]
